FAERS Safety Report 10487714 (Version 3)
Quarter: 2014Q4

REPORT INFORMATION
  Report Type: Report from Study
  Country: DE (occurrence: DE)
  Receive Date: 20141001
  Receipt Date: 20141003
  Transmission Date: 20150528
  Serious: Yes (Death)
  Sender: FDA-Public Use
  Company Number: DE-ABBVIE-13P-062-1150830-00

PATIENT
  Age: 77 Year
  Sex: Male

DRUGS (4)
  1. TRENANTONE [Suspect]
     Active Substance: LEUPROLIDE ACETATE
     Indication: PROSTATE CANCER
     Route: 058
     Dates: start: 20120403, end: 20130605
  2. AGENTS ACTING ON THE RENIN-ANGIOTENSIN SYSTEM [Concomitant]
     Active Substance: ANGIOTENSIN II
     Indication: PRODUCT USED FOR UNKNOWN INDICATION
  3. ANTIANDROGENS [Concomitant]
     Active Substance: UNSPECIFIED INGREDIENT
     Indication: PRODUCT USED FOR UNKNOWN INDICATION
     Dates: start: 20130605
  4. DRUGS USED IN DIABETES [Concomitant]
     Active Substance: UNSPECIFIED INGREDIENT
     Indication: DIABETES MELLITUS

REACTIONS (3)
  - Cachexia [Fatal]
  - Prostate cancer [Fatal]
  - Anaemia [Unknown]

NARRATIVE: CASE EVENT DATE: 20130522
